FAERS Safety Report 7141604-5 (Version None)
Quarter: 2010Q4

REPORT INFORMATION
  Report Type: 
  Country: None (occurrence: None)
  Receive Date: 20101113
  Receipt Date: 20101113
  Transmission Date: 20110411
  Serious: Yes (Hospitalization)
  Sender: FDA-Public Use
  Company Number: 1000017463

PATIENT
  Age: 45 Year
  Sex: Male

DRUGS (3)
  1. ESCITALOPRAM [Suspect]
  2. METHYLTHIONINIUM CHLORIDE (METHYLTHIONINIUM CHLORIDE) [Suspect]
     Indication: CARDIOPLEGIA
  3. FENTANYL [Concomitant]

REACTIONS (6)
  - DRUG INTERACTION [None]
  - METABOLIC ACIDOSIS [None]
  - RENAL FAILURE [None]
  - RESPIRATORY FAILURE [None]
  - RHABDOMYOLYSIS [None]
  - SEROTONIN SYNDROME [None]
